FAERS Safety Report 5125981-2 (Version None)
Quarter: 2006Q4

REPORT INFORMATION
  Report Type: 
  Country: None (occurrence: None)
  Receive Date: 20061012
  Receipt Date: 20060928
  Transmission Date: 20070319
  Serious: Yes (Life-Threatening, Hospitalization, Other)
  Sender: FDA-Public Use
  Company Number: JP-BRISTOL-MYERS SQUIBB COMPANY-13525514

PATIENT
  Age: 62 Year
  Sex: Male
  Weight: 44 kg

DRUGS (7)
  1. PACLITAXEL [Suspect]
     Indication: OESOPHAGEAL CARCINOMA
     Route: 041
     Dates: start: 20060928, end: 20060928
  2. OXYCONTIN [Concomitant]
     Indication: CANCER PAIN
     Route: 048
     Dates: start: 20060822
  3. OPSO [Concomitant]
     Indication: CANCER PAIN
     Route: 048
     Dates: start: 20060904
  4. MAG-OX [Concomitant]
     Indication: CONSTIPATION
     Route: 048
     Dates: start: 20060911
  5. PURSENNID [Concomitant]
     Indication: CONSTIPATION
     Route: 048
     Dates: start: 20060904
  6. ZESULAN [Concomitant]
     Indication: RASH
     Route: 048
     Dates: start: 20060922
  7. UREA [Concomitant]
     Indication: RASH
     Route: 061
     Dates: start: 20060922

REACTIONS (3)
  - CATHETER RELATED INFECTION [None]
  - HYPERSENSITIVITY [None]
  - RESPIRATORY ARREST [None]
